FAERS Safety Report 8100214-3 (Version None)
Quarter: 2012Q1

REPORT INFORMATION
  Report Type: 
  Country: None (occurrence: None)
  Receive Date: 20120131
  Receipt Date: 20120124
  Transmission Date: 20120608
  Serious: Yes (Other)
  Sender: FDA-Public Use
  Company Number: US-PFIZER INC-2011261907

PATIENT
  Sex: Female
  Weight: 67.12 kg

DRUGS (10)
  1. CRESTOR [Concomitant]
     Indication: BLOOD CHOLESTEROL INCREASED
     Dosage: 5 MG, DAILY
  2. ISOSORBIDE [Concomitant]
     Indication: ANGINA PECTORIS
     Dosage: UNK
  3. LEVOXYL [Concomitant]
     Indication: HYPOTHYROIDISM
     Dosage: 125 UG, DAILY
  4. COUMADIN [Concomitant]
     Indication: ANTICOAGULANT THERAPY
     Dosage: 3 MG DAILY
  5. CORDARONE [Suspect]
     Indication: ATRIAL FIBRILLATION
     Dosage: 200 MG, 1X/DAY
     Route: 048
     Dates: start: 20110414, end: 20120110
  6. TOPROL-XL [Concomitant]
     Indication: HYPERTENSION
     Dosage: UNK
  7. TOPROL-XL [Concomitant]
     Indication: HEART RATE ABNORMAL
  8. CRESTOR [Concomitant]
     Indication: ARTERIAL DISORDER
  9. ACETYLSALICYLIC ACID [Concomitant]
     Indication: ANTICOAGULANT THERAPY
     Dosage: UNK
  10. CORDARONE [Suspect]
     Indication: HEART RATE IRREGULAR

REACTIONS (9)
  - DYSPNOEA [None]
  - GAIT DISTURBANCE [None]
  - DIZZINESS [None]
  - WEIGHT INCREASED [None]
  - RESPIRATORY RATE INCREASED [None]
  - SKIN DISORDER [None]
  - ALOPECIA [None]
  - BLOOD CALCIUM INCREASED [None]
  - DRY SKIN [None]
